FAERS Safety Report 9110567 (Version 1)
Quarter: 2013Q1

REPORT INFORMATION
  Report Type: Spontaneous
  Country: US (occurrence: US)
  Receive Date: 20130219
  Receipt Date: 20130219
  Transmission Date: 20140127
  Serious: No
  Sender: FDA-Public Use
  Company Number: US-BRISTOL-MYERS SQUIBB COMPANY-16587537

PATIENT
  Age: 61 Year
  Sex: Male
  Weight: 179.13 kg

DRUGS (1)
  1. ABATACEPT SUBQ INJECTION 125MG/ML [Suspect]
     Indication: RHEUMATOID ARTHRITIS
     Dosage: LAST INJ ON 10MAY12,ALSO TAKEN ORENCIA IV
     Route: 058
     Dates: start: 201112

REACTIONS (4)
  - Pain [Unknown]
  - Sluggishness [Unknown]
  - Joint swelling [Unknown]
  - Drug ineffective [Unknown]
